FAERS Safety Report 24150773 (Version 1)
Quarter: 2024Q3

REPORT INFORMATION
  Report Type: Spontaneous
  Country: IT (occurrence: IT)
  Receive Date: 20240730
  Receipt Date: 20240730
  Transmission Date: 20241016
  Serious: Yes (Other)
  Sender: MYLAN
  Company Number: IT-MYLANLABS-2024M1069000

PATIENT
  Age: 82 Year
  Sex: Male

DRUGS (6)
  1. TACROLIMUS [Suspect]
     Active Substance: TACROLIMUS
     Indication: Dermatitis atopic
     Dosage: UNK
     Route: 061
  2. CETIRIZINE [Suspect]
     Active Substance: CETIRIZINE HYDROCHLORIDE
     Indication: Dermatitis atopic
     Dosage: UNK
     Route: 065
  3. RUPATADINE [Suspect]
     Active Substance: RUPATADINE
     Indication: Dermatitis atopic
     Dosage: UNK
     Route: 065
  4. CLOBETASOL [Suspect]
     Active Substance: CLOBETASOL
     Indication: Dermatitis atopic
     Dosage: UNK
     Route: 061
  5. DABRAFENIB [Concomitant]
     Active Substance: DABRAFENIB
     Indication: Nodular melanoma
     Dosage: 75 MILLIGRAM, QD [RECEIVING 4 CAPSULES]
     Route: 065
     Dates: start: 201903
  6. TRAMETINIB [Concomitant]
     Active Substance: TRAMETINIB
     Indication: Nodular melanoma
     Dosage: 2 MILLIGRAM, QD
     Route: 065
     Dates: start: 201903

REACTIONS (2)
  - Drug ineffective for unapproved indication [Unknown]
  - Off label use [Unknown]
